FAERS Safety Report 4865409-0 (Version None)
Quarter: 2005Q4

REPORT INFORMATION
  Report Type: 
  Country: None (occurrence: None)
  Receive Date: 20051219
  Receipt Date: 20051206
  Transmission Date: 20060501
  Serious: Yes (Death, Life-Threatening)
  Sender: FDA-Public Use
  Company Number: 2005S1000863

PATIENT
  Age: 2 Year
  Sex: Male

DRUGS (13)
  1. INOMAX [Suspect]
     Indication: VASODILATION PROCEDURE
     Dosage: 80 PPM, CONT
     Route: 055
     Dates: start: 20041220, end: 20041220
  2. ULTANE (SEVOFLURANE) [Concomitant]
  3. ESMERON (ROCURONIUM BROMIDE) [Concomitant]
  4. FENTANYL [Concomitant]
  5. DOBUTAMINE [Concomitant]
  6. MILRINONE [Concomitant]
  7. SILDENAFIL [Concomitant]
  8. ....................... [Concomitant]
  9. MIDAZOLAM [Concomitant]
  10. RANITIDINE [Concomitant]
  11. CEFAZOLIN [Concomitant]
  12. ACETAMINOPHEN [Concomitant]
  13. ENOXAPARIN SODIUM [Concomitant]

REACTIONS (14)
  - BRADYCARDIA [None]
  - CARDIAC ARREST [None]
  - DILATATION VENTRICULAR [None]
  - HAEMOGLOBIN DECREASED [None]
  - HYPOTENSION [None]
  - HYPOXIA [None]
  - LOW CARDIAC OUTPUT SYNDROME [None]
  - MITRAL VALVE STENOSIS [None]
  - PLATELET COUNT INCREASED [None]
  - PO2 INCREASED [None]
  - POST PROCEDURAL COMPLICATION [None]
  - THERAPY NON-RESPONDER [None]
  - TRICUSPID VALVE INCOMPETENCE [None]
  - VENTRICULAR DYSFUNCTION [None]
